FAERS Safety Report 8580262-X (Version None)
Quarter: 2012Q3

REPORT INFORMATION
  Report Type: 
  Country: None (occurrence: None)
  Receive Date: 20120808
  Receipt Date: 20120723
  Transmission Date: 20120928
  Serious: Yes (Other)
  Sender: FDA-Public Use
  Company Number: CHPA2012US016591

PATIENT
  Age: 29 Year
  Sex: Male

DRUGS (2)
  1. CATAPRES                                /UNK/ [Concomitant]
     Indication: HYPERTENSION
     Dosage: UNK, UNK
  2. NICOTINE [Suspect]
     Indication: SMOKING CESSATION THERAPY
     Dosage: 21 MG, QD
     Route: 061
     Dates: start: 20120531, end: 20120722

REACTIONS (10)
  - CEREBROVASCULAR ACCIDENT [None]
  - PAIN IN EXTREMITY [None]
  - APPLICATION SITE PAIN [None]
  - APPLICATION SITE IRRITATION [None]
  - IRRITABILITY [None]
  - APPLICATION SITE RASH [None]
  - APPLICATION SITE EXFOLIATION [None]
  - APPLICATION SITE DISCOLOURATION [None]
  - WRONG TECHNIQUE IN DRUG USAGE PROCESS [None]
  - APPLICATION SITE PERSPIRATION [None]
